FAERS Safety Report 23703597 (Version 1)
Quarter: 2024Q2

REPORT INFORMATION
  Report Type: Spontaneous
  Country: GB (occurrence: GB)
  Receive Date: 20240403
  Receipt Date: 20240403
  Transmission Date: 20240715
  Serious: Yes (Other)
  Sender: FDA-Public Use
  Company Number: None

PATIENT
  Age: 68 Year
  Sex: Female
  Weight: 55 kg

DRUGS (2)
  1. ALPHAGAN P [Suspect]
     Active Substance: BRIMONIDINE TARTRATE
     Indication: Angle closure glaucoma
     Dosage: LAST ADMIN DATE: MAR 2024
     Route: 047
     Dates: start: 20240328
  2. TRAVATAN [Concomitant]
     Active Substance: TRAVOPROST
     Indication: Angle closure glaucoma

REACTIONS (5)
  - Eye swelling [Recovering/Resolving]
  - Erythema [Unknown]
  - Pruritus [Unknown]
  - Skin burning sensation [Unknown]
  - Nervousness [Unknown]

NARRATIVE: CASE EVENT DATE: 20240328
